FAERS Safety Report 5316964-8 (Version None)
Quarter: 2007Q2

REPORT INFORMATION
  Report Type: 
  Country: None (occurrence: None)
  Receive Date: 20070504
  Receipt Date: 20070501
  Transmission Date: 20071010
  Serious: Yes (Disabling)
  Sender: FDA-Public Use
  Company Number: JP-ALLERGAN-0704454US

PATIENT
  Sex: Female

DRUGS (7)
  1. GATIFLOXACIN [Suspect]
     Indication: CATARACT OPERATION COMPLICATION
     Dosage: UNK, QID
     Route: 047
     Dates: start: 20070406
  2. GLUCOSE [Suspect]
     Indication: CATARACT OPERATION
     Route: 031
     Dates: start: 20070409, end: 20070409
  3. BROMFENAC SODIUM [Suspect]
     Indication: CATARACT OPERATION COMPLICATION
     Dosage: UNK, BID
     Route: 047
     Dates: start: 20070408, end: 20070412
  4. LIDOCAINE [Suspect]
     Indication: CATARACT OPERATION
     Dosage: 1 ML, SINGLE
     Route: 047
     Dates: start: 20070409, end: 20070409
  5. SODIUM HYALURONATE SODIUM CHONDROITIN SULFATE [Suspect]
     Indication: CATARACT OPERATION
     Dosage: 0.3 ML, SINGLE
     Route: 047
     Dates: start: 20070409, end: 20070409
  6. HYALURONATE SODIUM [Suspect]
     Indication: CATARACT OPERATION
     Dosage: 0.6 ML, SINGLE
     Route: 047
     Dates: start: 20070409, end: 20070409
  7. LIDOCAINE [Suspect]
     Indication: CATARACT OPERATION
     Dosage: 2 DF, SINGLE
     Route: 047
     Dates: start: 20070409, end: 20070409

REACTIONS (3)
  - CORNEAL DISORDER [None]
  - CORNEAL OEDEMA [None]
  - INTRAOCULAR PRESSURE INCREASED [None]
